FAERS Safety Report 8088083-1 (Version None)
Quarter: 2012Q1

REPORT INFORMATION
  Report Type: 
  Country: None (occurrence: None)
  Receive Date: 20120131
  Receipt Date: 20120119
  Transmission Date: 20120608
  Serious: Yes (Other)
  Sender: FDA-Public Use
  Company Number: US-AMGEN-USASP2011058085

PATIENT
  Age: 63 Year
  Sex: Male

DRUGS (1)
  1. ENBREL [Suspect]
     Indication: PSORIATIC ARTHROPATHY
     Dosage: 50 MG, QWK
     Dates: start: 20110601, end: 20120105

REACTIONS (5)
  - THYROID NEOPLASM [None]
  - LOCALISED INFECTION [None]
  - ARTHRITIS [None]
  - DRUG EFFECT DECREASED [None]
  - GENERAL PHYSICAL CONDITION ABNORMAL [None]
